FAERS Safety Report 19718080 (Version 2)
Quarter: 2024Q2

REPORT INFORMATION
  Report Type: Spontaneous
  Country: DE (occurrence: DE)
  Receive Date: 20210818
  Receipt Date: 20240621
  Transmission Date: 20240716
  Serious: Yes (Hospitalization)
  Sender: FDA-Public Use
  Company Number: DE-002147023-NVSC2021DE165752

PATIENT
  Sex: Male

DRUGS (2)
  1. SULFASALAZINE [Suspect]
     Active Substance: SULFASALAZINE
     Indication: Axial spondyloarthritis
     Dosage: 2000 MG, QD
     Route: 065
     Dates: start: 20190701, end: 20210209
  2. COSENTYX [Suspect]
     Active Substance: SECUKINUMAB
     Indication: Axial spondyloarthritis
     Dosage: 150 MG (EVERY 4 WEEKS)
     Route: 065
     Dates: start: 20210508

REACTIONS (2)
  - Arthralgia [Unknown]
  - Spinal pain [Unknown]
